FAERS Safety Report 8050043-4 (Version None)
Quarter: 2012Q1

REPORT INFORMATION
  Report Type: 
  Country: None (occurrence: None)
  Receive Date: 20120111
  Receipt Date: 20110526
  Transmission Date: 20120608
  Serious: Yes (Other)
  Sender: FDA-Public Use
  Company Number: 2011-03083

PATIENT
  Age: 28 Year
  Sex: Female

DRUGS (1)
  1. TUBERSOL [Suspect]
     Indication: TUBERCULIN TEST
     Dosage: I.D.
     Route: 026
     Dates: start: 20110525, end: 20110525

REACTIONS (4)
  - ERYTHEMA [None]
  - PRURITUS [None]
  - PYREXIA [None]
  - OEDEMA PERIPHERAL [None]
